FAERS Safety Report 9164174 (Version 3)
Quarter: 2013Q4

REPORT INFORMATION
  Report Type: Spontaneous
  Country: GB (occurrence: GB)
  Receive Date: 20130315
  Receipt Date: 20131010
  Transmission Date: 20140711
  Serious: Yes (Death, Congenital Anomaly)
  Sender: FDA-Public Use
  Company Number: GB-BIOGENIDEC-2013BI022088

PATIENT
  Age: 0 Day
  Sex: Male
  Weight: 2 kg

DRUGS (2)
  1. TYSABRI [Suspect]
     Indication: MATERNAL EXPOSURE TIMING UNSPECIFIED
     Route: 064
     Dates: start: 201003, end: 20120511
  2. ZOLPIDEM [Concomitant]
     Indication: INSOMNIA
     Route: 064
     Dates: end: 20120519

REACTIONS (7)
  - Renal dysplasia [Fatal]
  - Renal failure [Fatal]
  - Pulmonary hypoplasia [Fatal]
  - Congenital cystic kidney disease [Fatal]
  - Urethral valves [Not Recovered/Not Resolved]
  - Ureteric dilatation [Not Recovered/Not Resolved]
  - Urinary tract obstruction [Not Recovered/Not Resolved]
